FAERS Safety Report 24611858 (Version 1)
Quarter: 2024Q4

REPORT INFORMATION
  Report Type: Spontaneous
  Country: DE (occurrence: DE)
  Receive Date: 20241113
  Receipt Date: 20241113
  Transmission Date: 20250115
  Serious: Yes (Hospitalization, Other)
  Sender: EMD SERONO INC
  Company Number: None

PATIENT
  Age: 52 Year
  Sex: Female
  Weight: 72 kg

DRUGS (1)
  1. MAVENCLAD [Suspect]
     Active Substance: CLADRIBINE
     Indication: Relapsing multiple sclerosis
     Dosage: WEEK ONE THERAPY: 2 TABLETS ON DAY 1 TO 2 AND 1 TABLET ON DAY 3 TO 5
     Route: 048
     Dates: start: 20240927, end: 20241001

REACTIONS (4)
  - Abdominal pain upper [Recovered/Resolved]
  - Acute cholecystitis necrotic [Recovered/Resolved]
  - Peritonitis [Recovered/Resolved]
  - Gallbladder rupture [Recovered/Resolved]

NARRATIVE: CASE EVENT DATE: 20241001
